FAERS Safety Report 9328509 (Version 1)
Quarter: 2013Q2

REPORT INFORMATION
  Report Type: Spontaneous
  Country: US (occurrence: US)
  Receive Date: 20130604
  Receipt Date: 20130604
  Transmission Date: 20140414
  Serious: No
  Sender: FDA-Public Use
  Company Number: US-SANOFI-AVENTIS-2012SA020019

PATIENT
  Age: 68 Year
  Sex: Male
  Weight: 77.1 kg

DRUGS (11)
  1. SOLOSTAR [Suspect]
     Indication: TYPE 2 DIABETES MELLITUS
     Dosage: THERAPY START DATE:1 TO 2 YEARS AGO.
     Dates: start: 20100709
  2. SOLOSTAR [Suspect]
     Indication: TYPE 2 DIABETES MELLITUS
     Dosage: THERAPY START DATE:1 TO 2 YEARS AGO.
     Dates: start: 20100709
  3. SOLOSTAR [Suspect]
     Indication: TYPE 2 DIABETES MELLITUS
     Dosage: THERAPY START DATE:1 TO 2 YEARS AGO.
     Dates: start: 20100709
  4. LANTUS [Suspect]
     Indication: TYPE 2 DIABETES MELLITUS
     Dosage: DOSE:20 UNIT(S)
     Route: 058
     Dates: start: 20100709
  5. LANTUS [Suspect]
     Indication: TYPE 2 DIABETES MELLITUS
     Dosage: DOSE:20 UNIT(S)
     Route: 058
     Dates: start: 20100709
  6. LANTUS [Suspect]
     Indication: TYPE 2 DIABETES MELLITUS
     Dosage: DOSE:20 UNIT(S)
     Route: 058
     Dates: start: 20100709
  7. LISINOPRIL [Concomitant]
  8. AMLODIPINE [Concomitant]
  9. GLYBURIDE W/METFORMIN [Concomitant]
  10. METOPROLOL [Concomitant]
  11. ALLOPURINOL [Concomitant]

REACTIONS (5)
  - Headache [Recovered/Resolved]
  - Product quality issue [Unknown]
  - Dizziness [Recovered/Resolved]
  - Blood glucose increased [Recovering/Resolving]
  - Injection site pain [Unknown]
